FAERS Safety Report 10467329 (Version 1)
Quarter: 2014Q3

REPORT INFORMATION
  Report Type: Spontaneous
  Country: US (occurrence: US)
  Receive Date: 20140922
  Receipt Date: 20140922
  Transmission Date: 20150326
  Serious: Yes (Other)
  Sender: FDA-Public Use
  Company Number: US-PFIZER INC-2014261342

PATIENT
  Age: 51 Year
  Sex: Female
  Weight: 56.69 kg

DRUGS (1)
  1. DILANTIN [Suspect]
     Active Substance: PHENYTOIN
     Dosage: 300 MG, 1X/DAY
     Route: 048

REACTIONS (1)
  - Breast cancer female [Unknown]

NARRATIVE: CASE EVENT DATE: 2010
